FAERS Safety Report 7603168-9 (Version None)
Quarter: 2011Q3

REPORT INFORMATION
  Report Type: 
  Country: None (occurrence: None)
  Receive Date: 20110711
  Receipt Date: 20110711
  Transmission Date: 20111222
  Serious: Yes (Death)
  Sender: FDA-Public Use
  Company Number: None

PATIENT
  Age: 67 Year
  Sex: Female
  Weight: 98.6 kg

DRUGS (2)
  1. RITUXIMAB [Suspect]
     Indication: MULTIPLE MYELOMA
     Dosage: 540 MG DAYS -22 AND -14
  2. MELPHALAN HYDROCHLORIDE [Suspect]
     Indication: MULTIPLE MYELOMA
     Dosage: 170 MG DAYS -2 AND -1

REACTIONS (3)
  - DISEASE COMPLICATION [None]
  - GASTROINTESTINAL NECROSIS [None]
  - MULTI-ORGAN FAILURE [None]
